FAERS Safety Report 9668077 (Version 1)
Quarter: 2013Q4

REPORT INFORMATION
  Report Type: Spontaneous
  Country: US (occurrence: None)
  Receive Date: 20131101
  Receipt Date: 20131101
  Transmission Date: 20140711
  Serious: Yes (Death)
  Sender: FDA-Public Use
  Company Number: ADR-2013-01983

PATIENT
  Age: 27 Year
  Sex: Male

DRUGS (1)
  1. BACLOFEN [Suspect]
     Indication: INFUSION

REACTIONS (1)
  - Death [None]
